FAERS Safety Report 7341343-1 (Version None)
Quarter: 2011Q1

REPORT INFORMATION
  Report Type: 
  Country: None (occurrence: None)
  Receive Date: 20110309
  Receipt Date: 20110225
  Transmission Date: 20110831
  Serious: Yes (Other)
  Sender: FDA-Public Use
  Company Number: CA-WATSON-2011-02707

PATIENT

DRUGS (2)
  1. TACROLIMUS (WATSON LABORATORIES) [Suspect]
     Indication: NEPHROTIC SYNDROME
     Dosage: UNK
  2. CYCLOPHOSPHAMIDE [Suspect]
     Indication: NEPHROTIC SYNDROME
     Dosage: UNK

REACTIONS (2)
  - RENAL TUBULAR ATROPHY [None]
  - KIDNEY FIBROSIS [None]
